FAERS Safety Report 4883458-3 (Version None)
Quarter: 2006Q1

REPORT INFORMATION
  Report Type: 
  Country: None (occurrence: None)
  Receive Date: 20060118
  Receipt Date: 20051005
  Transmission Date: 20060701
  Serious: Yes (Death, Hospitalization)
  Sender: FDA-Public Use
  Company Number: US-MERCK-0510USA04341

PATIENT
  Age: 53 Year
  Sex: Male
  Weight: 114 kg

DRUGS (4)
  1. VIOXX [Suspect]
     Indication: INTERVERTEBRAL DISC PROTRUSION
     Route: 048
     Dates: start: 20020101, end: 20030224
  2. LOTREL [Concomitant]
     Route: 065
  3. ALLEGRA [Concomitant]
     Route: 065
  4. HYDROCHLOROTHIAZIDE [Concomitant]
     Route: 065

REACTIONS (10)
  - ARRHYTHMIA [None]
  - DIVERTICULUM INTESTINAL [None]
  - HAEMATOCHEZIA [None]
  - HAEMORRHOIDS [None]
  - HIATUS HERNIA [None]
  - HYPERTENSIVE HEART DISEASE [None]
  - LOWER GASTROINTESTINAL HAEMORRHAGE [None]
  - MYOCARDIAL INFARCTION [None]
  - OESOPHAGITIS [None]
  - SUDDEN CARDIAC DEATH [None]
